FAERS Safety Report 5464414-3 (Version None)
Quarter: 2007Q3

REPORT INFORMATION
  Report Type: 
  Country: None (occurrence: None)
  Receive Date: 20070921
  Receipt Date: 20070914
  Transmission Date: 20080115
  Serious: Yes (Other)
  Sender: FDA-Public Use
  Company Number: US-JNJFOC-20070903475

PATIENT
  Sex: Female
  Weight: 92.99 kg

DRUGS (2)
  1. CONCERTA [Suspect]
     Indication: DEPRESSION
     Route: 048
  2. CONCERTA [Suspect]
     Indication: ATTENTION DEFICIT/HYPERACTIVITY DISORDER
     Route: 048

REACTIONS (2)
  - INCREASED TENDENCY TO BRUISE [None]
  - MENORRHAGIA [None]
